FAERS Safety Report 6808126-X (Version None)
Quarter: 2010Q2

REPORT INFORMATION
  Report Type: 
  Country: None (occurrence: None)
  Receive Date: 20100629
  Receipt Date: 20090616
  Transmission Date: 20101027
  Serious: No
  Sender: FDA-Public Use
  Company Number: US-PFIZER INC-2009183171

PATIENT
  Sex: Male

DRUGS (2)
  1. ALDACTONE [Suspect]
     Dosage: 100 MG, 2X/DAY
     Route: 048
  2. PROSCAR [Suspect]

REACTIONS (3)
  - ABDOMINAL PAIN [None]
  - LIP SWELLING [None]
  - RASH [None]
